FAERS Safety Report 12966213 (Version 5)
Quarter: 2017Q1

REPORT INFORMATION
  Report Type: Report from Study
  Country: US (occurrence: US)
  Receive Date: 20161122
  Receipt Date: 20170330
  Transmission Date: 20170428
  Serious: Yes (Death, Hospitalization)
  Sender: FDA-Public Use
  Company Number: US-ACTELION-A-US2016-145827

PATIENT
  Age: 83 Year
  Sex: Female
  Weight: 63.49 kg

DRUGS (4)
  1. WARFARIN [Concomitant]
     Active Substance: WARFARIN
  2. OPSUMIT [Suspect]
     Active Substance: MACITENTAN
     Indication: PULMONARY ARTERIAL HYPERTENSION
     Dosage: 10 MG, QD
     Route: 048
     Dates: start: 20150407
  3. AMLODIPINE [Concomitant]
     Active Substance: AMLODIPINE BESYLATE
  4. ADCIRCA [Concomitant]
     Active Substance: TADALAFIL

REACTIONS (12)
  - Brain oedema [Unknown]
  - Fall [Unknown]
  - Death [Fatal]
  - Ear infection [Unknown]
  - Fatigue [Unknown]
  - Cardiac failure congestive [Unknown]
  - Dizziness [Unknown]
  - Cystitis [Unknown]
  - Dyspnoea exertional [Unknown]
  - Syncope [Unknown]
  - Decreased appetite [Unknown]
  - Contusion [Unknown]

NARRATIVE: CASE EVENT DATE: 20161108
